FAERS Safety Report 10583366 (Version 1)
Quarter: 2014Q4

REPORT INFORMATION
  Report Type: Spontaneous
  Country: US (occurrence: None)
  Receive Date: 20141112
  Receipt Date: 20141112
  Transmission Date: 20150529
  Serious: Yes (Life-Threatening, Other)
  Sender: FDA-Public Use
  Company Number: LH201400376

PATIENT
  Age: 0 Day

DRUGS (1)
  1. MAKENA [Suspect]
     Active Substance: HYDROXYPROGESTERONE CAPROATE
     Indication: EXPOSURE DURING PREGNANCY
     Dates: start: 20140708, end: 20141022

REACTIONS (3)
  - Nonreassuring foetal heart rate pattern [None]
  - Maternal drugs affecting foetus [None]
  - Premature baby [None]

NARRATIVE: CASE EVENT DATE: 20141026
